FAERS Safety Report 17010494 (Version 4)
Quarter: 2020Q2

REPORT INFORMATION
  Report Type: Spontaneous
  Country: US (occurrence: US)
  Receive Date: 20191108
  Receipt Date: 20200406
  Transmission Date: 20200713
  Serious: Yes (Other)
  Sender: FDA-Public Use
  Company Number: US-JNJFOC-20191108882

PATIENT
  Sex: Female
  Weight: 51.76 kg

DRUGS (5)
  1. STELARA [Suspect]
     Active Substance: USTEKINUMAB
     Indication: CROHN^S DISEASE
     Route: 042
     Dates: start: 20190909, end: 20190911
  2. IRON [Concomitant]
     Active Substance: IRON
     Route: 042
  3. BUDESONIDE. [Concomitant]
     Active Substance: BUDESONIDE
     Indication: CROHN^S DISEASE
     Route: 065
     Dates: start: 201306, end: 201909
  4. STELARA [Suspect]
     Active Substance: USTEKINUMAB
     Dosage: THERAPY WAS ONGOING
     Route: 058
  5. PREDNISONE. [Concomitant]
     Active Substance: PREDNISONE
     Indication: CROHN^S DISEASE
     Route: 065
     Dates: start: 201708

REACTIONS (2)
  - Alopecia [Recovered/Resolved]
  - Colectomy [Unknown]

NARRATIVE: CASE EVENT DATE: 2019
